FAERS Safety Report 18152420 (Version 1)
Quarter: 2020Q3

REPORT INFORMATION
  Report Type: Report from Study
  Country: US (occurrence: US)
  Receive Date: 20200814
  Receipt Date: 20200814
  Transmission Date: 20201103
  Serious: Yes (Hospitalization)
  Sender: FDA-Public Use
  Company Number: US-ACTELION-A-US2020-203390

PATIENT
  Age: 25 Year
  Sex: Female
  Weight: 90.7 kg

DRUGS (7)
  1. UPTRAVI [Suspect]
     Active Substance: SELEXIPAG
     Dosage: 800 MCG
     Route: 048
  2. UPTRAVI [Suspect]
     Active Substance: SELEXIPAG
     Dosage: 1000 MCG, BID
     Route: 048
  3. LETAIRIS [Concomitant]
     Active Substance: AMBRISENTAN
  4. REMODULIN [Concomitant]
     Active Substance: TREPROSTINIL
     Dosage: 6 NG/KG, PER MIN
  5. UPTRAVI [Suspect]
     Active Substance: SELEXIPAG
     Dosage: 1600 MCG, BID
     Route: 048
  6. UPTRAVI [Suspect]
     Active Substance: SELEXIPAG
     Indication: PULMONARY ARTERIAL HYPERTENSION
     Dosage: 200 MCG, BID
     Route: 048
  7. COUMADIN [Concomitant]
     Active Substance: WARFARIN SODIUM

REACTIONS (11)
  - Dyspnoea exertional [Unknown]
  - Pain in jaw [Unknown]
  - Nausea [Unknown]
  - Feeling abnormal [Recovering/Resolving]
  - Headache [Unknown]
  - Fatigue [Unknown]
  - Flushing [Unknown]
  - Constipation [Unknown]
  - Anxiety [Unknown]
  - Therapy change [Unknown]
  - Hypotension [Unknown]

NARRATIVE: CASE EVENT DATE: 20200310
